FAERS Safety Report 4448625-1 (Version None)
Quarter: 2004Q3

REPORT INFORMATION
  Report Type: 
  Country: None (occurrence: None)
  Receive Date: 20040909
  Receipt Date: 20040909
  Transmission Date: 20050211
  Serious: Yes (Disabling)
  Sender: FDA-Public Use
  Company Number: None

PATIENT
  Sex: Female
  Weight: 58.514 kg

DRUGS (8)
  1. VISUDYNE [Suspect]
     Indication: MACULAR DEGENERATION
     Dosage: 9 MG EVERY 3 INTRAVENOUS
     Route: 042
     Dates: start: 20040305, end: 20040305
  2. VISUDYNE [Suspect]
     Dates: start: 20040625, end: 20040625
  3. LIPITOR [Concomitant]
  4. PROCARDIA [Concomitant]
  5. SYNTHROID [Concomitant]
  6. EVISTA [Concomitant]
  7. ASPIRIN [Concomitant]
  8. MULTIVITAMIN [Concomitant]

REACTIONS (3)
  - ARTHRALGIA [None]
  - INFUSION RELATED REACTION [None]
  - MOBILITY DECREASED [None]
